FAERS Safety Report 11862127 (Version 2)
Quarter: 2016Q1

REPORT INFORMATION
  Report Type: Spontaneous
  Country: FR (occurrence: FR)
  Receive Date: 20151222
  Receipt Date: 20160114
  Transmission Date: 20160526
  Serious: Yes (Other)
  Sender: FDA-Public Use
  Company Number: FR-GILEAD-2015-0188917

PATIENT
  Age: 49 Year
  Sex: Male
  Weight: 66 kg

DRUGS (3)
  1. REYATAZ [Concomitant]
     Active Substance: ATAZANAVIR SULFATE
  2. NORVIR [Concomitant]
     Active Substance: RITONAVIR
  3. TRUVADA [Suspect]
     Active Substance: EMTRICITABINE\TENOFOVIR DISOPROXIL FUMARATE
     Indication: HIV INFECTION
     Dosage: UNK
     Route: 048
     Dates: start: 20091229, end: 20141105

REACTIONS (5)
  - Hypertension [Unknown]
  - Hypophosphataemia [Unknown]
  - Retinol binding protein increased [Unknown]
  - Renal tubular disorder [Unknown]
  - Renal failure [Unknown]

NARRATIVE: CASE EVENT DATE: 20141105
